FAERS Safety Report 8759834 (Version 2)
Quarter: 2015Q2

REPORT INFORMATION
  Report Type: Report from Study
  Country: US (occurrence: US)
  Receive Date: 20120829
  Receipt Date: 20150624
  Transmission Date: 20150821
  Serious: Yes (Death)
  Sender: FDA-Public Use
  Company Number: US-ROCHE-1097917

PATIENT
  Sex: Female
  Weight: 42.68 kg

DRUGS (3)
  1. ARANESP [Concomitant]
     Active Substance: DARBEPOETIN ALFA
  2. TARCEVA [Suspect]
     Active Substance: ERLOTINIB HYDROCHLORIDE
     Indication: PANCREATIC CARCINOMA
     Route: 048
     Dates: start: 20090127
  3. AVASTIN [Suspect]
     Active Substance: BEVACIZUMAB
     Indication: PANCREATIC CARCINOMA
     Route: 065

REACTIONS (7)
  - Diaphragmatic disorder [Unknown]
  - Spinal osteoarthritis [Unknown]
  - Anaemia [Unknown]
  - Off label use [Unknown]
  - Death [Fatal]
  - Ascites [Unknown]
  - Fatigue [Unknown]
